FAERS Safety Report 7078381-2 (Version None)
Quarter: 2010Q4

REPORT INFORMATION
  Report Type: 
  Country: None (occurrence: None)
  Receive Date: 20101102
  Receipt Date: 20101029
  Transmission Date: 20110411
  Serious: Yes (Other)
  Sender: FDA-Public Use
  Company Number: GB-WYE-G06890610

PATIENT
  Age: 40 Year
  Sex: Female
  Weight: 54 kg

DRUGS (4)
  1. VENLAFAXINE HYDROCHLORIDE [Suspect]
     Indication: CHRONIC FATIGUE SYNDROME
     Dosage: 75MG, UNKNOWN FREQUENCY
     Route: 048
     Dates: start: 20091109, end: 20101001
  2. VENLAFAXINE HYDROCHLORIDE [Suspect]
     Indication: DEPRESSION
  3. LYMECYCLINE [Concomitant]
     Dosage: 408MG, FREQUENCY UNKNOWN
     Route: 048
     Dates: start: 20090903
  4. HYDROXYUREA [Concomitant]
     Indication: ESSENTIAL THROMBOCYTHAEMIA
     Dosage: UNKNOWN
     Route: 048
     Dates: start: 19930101

REACTIONS (4)
  - HALLUCINATION [None]
  - VOMITING [None]
  - WEIGHT DECREASED [None]
  - WITHDRAWAL SYNDROME [None]
